FAERS Safety Report 8060195-8 (Version None)
Quarter: 2012Q1

REPORT INFORMATION
  Report Type: 
  Country: None (occurrence: None)
  Receive Date: 20120119
  Receipt Date: 20120119
  Transmission Date: 20120608
  Serious: Yes (Hospitalization)
  Sender: FDA-Public Use
  Company Number: None

PATIENT
  Age: 85 Year
  Sex: Female
  Weight: 50 kg

DRUGS (9)
  1. OS-CAL D [Concomitant]
  2. KLOR-CON [Concomitant]
  3. DIOVAN [Concomitant]
  4. ISOSORBIDE DINITRATE [Concomitant]
  5. FERROUS SULFATE TAB [Concomitant]
  6. ASPIRIN [Concomitant]
  7. FUROSEMIDE [Concomitant]
  8. METFORMIN HCL [Suspect]
     Indication: DIABETES MELLITUS
     Dosage: CHRONIC
  9. SYNTHROID [Concomitant]

REACTIONS (4)
  - FALL [None]
  - LACTIC ACIDOSIS [None]
  - SUBDURAL HAEMATOMA [None]
  - EPISTAXIS [None]
